FAERS Safety Report 7594257-6 (Version None)
Quarter: 2011Q3

REPORT INFORMATION
  Report Type: 
  Country: None (occurrence: None)
  Receive Date: 20110706
  Receipt Date: 20110706
  Transmission Date: 20111222
  Serious: Yes (Death, Life-Threatening, Hospitalization, Disabling, Congenital Anomaly, Other)
  Sender: FDA-Public Use
  Company Number: None

PATIENT
  Age: 23 Year
  Sex: Male
  Weight: 74.842 kg

DRUGS (1)
  1. PROPECIA [Suspect]
     Indication: ANDROGENETIC ALOPECIA
     Dosage: 1 MG -1 PILL-
     Route: 048
     Dates: start: 20070115, end: 20070501

REACTIONS (14)
  - LIBIDO DECREASED [None]
  - SLEEP DISORDER [None]
  - DISTURBANCE IN ATTENTION [None]
  - ADRENAL DISORDER [None]
  - PAIN [None]
  - DYSURIA [None]
  - SEBORRHOEIC DERMATITIS [None]
  - EJACULATION DISORDER [None]
  - HYPOGONADISM [None]
  - TESTICULAR PAIN [None]
  - ERECTILE DYSFUNCTION [None]
  - SEMEN LIQUEFACTION [None]
  - FATIGUE [None]
  - VITREOUS FLOATERS [None]
